FAERS Safety Report 4970910-5 (Version None)
Quarter: 2006Q2

REPORT INFORMATION
  Report Type: 
  Country: None (occurrence: None)
  Receive Date: 20060412
  Receipt Date: 20060404
  Transmission Date: 20061013
  Serious: Yes (Hospitalization)
  Sender: FDA-Public Use
  Company Number: FR-BRISTOL-MYERS SQUIBB COMPANY-13337811

PATIENT
  Age: 83 Year
  Sex: Female

DRUGS (3)
  1. COAPROVEL TABS [Suspect]
     Route: 048
     Dates: end: 20060221
  2. SINTROM [Concomitant]
     Dosage: 2 MG DAILY
  3. MEDIATENSYL [Concomitant]

REACTIONS (4)
  - FALL [None]
  - HYPOKALAEMIA [None]
  - HYPONATRAEMIA [None]
  - MALAISE [None]
